FAERS Safety Report 19952731 (Version 1)
Quarter: 2021Q4

REPORT INFORMATION
  Report Type: Spontaneous
  Country: US (occurrence: US)
  Receive Date: 20211012
  Receipt Date: 20211012
  Transmission Date: 20220303
  Serious: Yes (Hospitalization)
  Sender: FDA-Public Use
  Company Number: None

PATIENT
  Age: 69 Year
  Sex: Male

DRUGS (1)
  1. REGEN-COV [Suspect]
     Active Substance: CASIRIVIMAB\IMDEVIMAB
     Indication: COVID-19
     Dates: start: 20210913, end: 20210913

REACTIONS (8)
  - Dizziness [None]
  - Dyspnoea [None]
  - Cough [None]
  - Fatigue [None]
  - Leukopenia [None]
  - Anaemia [None]
  - Wheezing [None]
  - Palpitations [None]

NARRATIVE: CASE EVENT DATE: 20210914
